FAERS Safety Report 24422626 (Version 1)
Quarter: 2024Q4

REPORT INFORMATION
  Report Type: Spontaneous
  Country: US (occurrence: None)
  Receive Date: 20241009
  Receipt Date: 20241009
  Transmission Date: 20250115
  Serious: No
  Sender: Public
  Company Number: None

PATIENT
  Age: 73 Year
  Sex: Male
  Weight: 112 kg

DRUGS (2)
  1. WARFARIN SODIUM [Suspect]
     Active Substance: WARFARIN SODIUM
     Indication: Aortic valve repair
     Route: 048
  2. ASPIRIN [Suspect]
     Active Substance: ASPIRIN
     Dosage: FREQUENCY : DAILY;?
     Route: 048
     Dates: end: 20240618

REACTIONS (6)
  - Gastrointestinal haemorrhage [None]
  - Blood loss anaemia [None]
  - Haemorrhoids [None]
  - International normalised ratio decreased [None]
  - Chest discomfort [None]
  - Chest discomfort [None]

NARRATIVE: CASE EVENT DATE: 20240612
